FAERS Safety Report 8361613-8 (Version None)
Quarter: 2012Q2

REPORT INFORMATION
  Report Type: 
  Country: None (occurrence: None)
  Receive Date: 20120515
  Receipt Date: 20120512
  Transmission Date: 20120825
  Serious: No
  Sender: FDA-Public Use
  Company Number: US-BAYER-2012-047352

PATIENT

DRUGS (4)
  1. ASPIRIN [Concomitant]
     Indication: HEADACHE
  2. PRESCRIPTION PILLS [Concomitant]
     Indication: HEADACHE
  3. MOTRIN [Concomitant]
     Indication: HEADACHE
  4. NAPROXEN SODIUM [Suspect]
     Indication: HEADACHE
     Route: 048

REACTIONS (1)
  - HEADACHE [None]
